FAERS Safety Report 19251670 (Version 5)
Quarter: 2022Q2

REPORT INFORMATION
  Report Type: Report from Study
  Country: KR (occurrence: None)
  Receive Date: 20210512
  Receipt Date: 20220527
  Transmission Date: 20220721
  Serious: Yes (Death, Life-Threatening, Hospitalization, Other)
  Sender: FDA-Public Use
  Company Number: KR-EISAI MEDICAL RESEARCH-EC-2021-089861

PATIENT
  Age: 75 Year
  Sex: Male
  Weight: 70 kg

DRUGS (20)
  1. LENVIMA [Suspect]
     Active Substance: LENVATINIB
     Indication: Hepatocellular carcinoma
     Route: 048
     Dates: start: 20210210, end: 20210223
  2. LENVIMA [Suspect]
     Active Substance: LENVATINIB
     Route: 048
     Dates: start: 20210224, end: 20210412
  3. EPROSARTAN\HYDROCHLOROTHIAZIDE [Concomitant]
     Active Substance: EPROSARTAN\HYDROCHLOROTHIAZIDE
     Indication: Hypertension
     Route: 048
     Dates: start: 20180628
  4. CILOSTAZOL [Concomitant]
     Active Substance: CILOSTAZOL
     Indication: Arteriosclerosis
     Route: 048
     Dates: start: 20200109, end: 20210327
  5. HARNAL [Concomitant]
     Active Substance: TAMSULOSIN HYDROCHLORIDE
     Indication: Benign prostatic hyperplasia
     Route: 048
     Dates: start: 20210217
  6. LINAGLIPTIN\METFORMIN HYDROCHLORIDE [Concomitant]
     Active Substance: LINAGLIPTIN\METFORMIN HYDROCHLORIDE
     Indication: Diabetes mellitus
     Route: 048
     Dates: start: 20170818, end: 20210327
  7. GLICLAZIDE [Concomitant]
     Active Substance: GLICLAZIDE
     Indication: Diabetes mellitus
     Route: 048
     Dates: start: 20210315
  8. MEGACE [Concomitant]
     Active Substance: MEGESTROL ACETATE
     Indication: Prophylaxis
     Route: 048
     Dates: start: 20210217, end: 20210316
  9. PREDNISOLONE [Concomitant]
     Active Substance: PREDNISOLONE
     Indication: Rash
     Route: 048
     Dates: start: 20210223, end: 20210330
  10. ADIPAM [Concomitant]
     Indication: Rash
     Route: 048
     Dates: start: 20210224, end: 20210330
  11. PANTOPRAZOLE SODIUM [Concomitant]
     Active Substance: PANTOPRAZOLE SODIUM
     Indication: Prophylaxis
     Dates: start: 20210414, end: 20210415
  12. PROPACETAMOL HYDROCHLORIDE [Concomitant]
     Active Substance: PROPACETAMOL HYDROCHLORIDE
     Indication: Urinary tract infection
     Dates: start: 20210414, end: 20210415
  13. TRAMADOL HYDROCHLORIDE [Concomitant]
     Active Substance: TRAMADOL HYDROCHLORIDE
     Indication: Urinary tract infection
     Dates: start: 20210415, end: 20210416
  14. KYONGBO CEFTRIAXONE SODIUM [Concomitant]
     Indication: Urinary tract infection
     Route: 042
     Dates: start: 20210414, end: 20210414
  15. AVELOX [Concomitant]
     Active Substance: MOXIFLOXACIN HYDROCHLORIDE
     Indication: Urinary tract infection
     Route: 042
     Dates: start: 20210414, end: 20210414
  16. INVANZ [Concomitant]
     Active Substance: ERTAPENEM SODIUM
     Indication: Urinary tract infection
     Route: 042
     Dates: start: 20210415, end: 20210418
  17. DONGA GASTER [Concomitant]
     Indication: Prophylaxis
     Route: 042
     Dates: start: 20210415, end: 20210418
  18. LASIX [Concomitant]
     Active Substance: FUROSEMIDE
     Indication: Prophylaxis
     Route: 042
     Dates: start: 20210416, end: 20210417
  19. TERIPIN [Concomitant]
     Indication: Prophylaxis
     Route: 042
     Dates: start: 20210416, end: 20210418
  20. MECKOOL [Concomitant]
     Indication: Prophylaxis
     Route: 042
     Dates: start: 20210415, end: 20210416

REACTIONS (2)
  - Urinary tract infection [Fatal]
  - Seizure [Unknown]

NARRATIVE: CASE EVENT DATE: 20210303
